FAERS Safety Report 6049152-0 (Version None)
Quarter: 2009Q1

REPORT INFORMATION
  Report Type: 
  Country: None (occurrence: None)
  Receive Date: 20090123
  Receipt Date: 20090120
  Transmission Date: 20090719
  Serious: Yes (Hospitalization)
  Sender: FDA-Public Use
  Company Number: FR-ELI_LILLY_AND_COMPANY-FR200901003181

PATIENT
  Sex: Male

DRUGS (6)
  1. ALIMTA [Suspect]
     Indication: METASTATIC BRONCHIAL CARCINOMA
     Dosage: 1000 MG, UNK
     Route: 042
     Dates: start: 20081029, end: 20081029
  2. SPECIAFOLDINE [Concomitant]
     Indication: SUPPLEMENTATION THERAPY
     Dosage: 0.4 MG, 2/D
     Route: 048
     Dates: start: 20081022, end: 20081029
  3. PRAZOSIN HCL [Concomitant]
     Indication: HYPERTENSION
     Dosage: 1 D/F, DAILY (1/D)
     Route: 048
     Dates: start: 20020101
  4. RABEPRAZOLE SODIUM [Concomitant]
     Indication: ULCER
     Dosage: 1 D/F, DAILY (1/D)
     Route: 048
  5. VITAMIN B-12 [Concomitant]
     Indication: PREMEDICATION
     Dosage: 1 MG, MONTHLY (1/M)
     Route: 030
     Dates: start: 20081022
  6. ZOPHREN [Concomitant]
     Dosage: 45 MG, DAILY (1/D)
     Route: 042
     Dates: start: 20081029, end: 20081029

REACTIONS (2)
  - ERYTHEMA [None]
  - PAIN [None]
